FAERS Safety Report 25946170 (Version 1)
Quarter: 2025Q4

REPORT INFORMATION
  Report Type: Spontaneous
  Country: US (occurrence: US)
  Receive Date: 20251022
  Receipt Date: 20251022
  Transmission Date: 20260118
  Serious: No
  Sender: SANOFI AVENTIS
  Company Number: US-SA-2025SA310430

PATIENT
  Sex: Female

DRUGS (1)
  1. DUPILUMAB [Suspect]
     Active Substance: DUPILUMAB
     Indication: Eosinophilic oesophagitis
     Route: 058

REACTIONS (3)
  - Dysphagia [Not Recovered/Not Resolved]
  - Flushing [Not Recovered/Not Resolved]
  - Arthralgia [Not Recovered/Not Resolved]
